FAERS Safety Report 14813445 (Version 1)
Quarter: 2018Q2

REPORT INFORMATION
  Report Type: Report from Study
  Country: US (occurrence: US)
  Receive Date: 20180426
  Receipt Date: 20180426
  Transmission Date: 20180711
  Serious: Yes (Hospitalization)
  Sender: FDA-Public Use
  Company Number: US-HORIZON-KRY-0110-2018

PATIENT
  Age: 61 Year
  Sex: Male

DRUGS (1)
  1. KRYSTEXXA [Suspect]
     Active Substance: PEGLOTICASE
     Indication: GOUT

REACTIONS (3)
  - Back pain [Unknown]
  - Rash [Unknown]
  - Throat tightness [Unknown]

NARRATIVE: CASE EVENT DATE: 20180419
